FAERS Safety Report 7728785-7 (Version None)
Quarter: 2011Q3

REPORT INFORMATION
  Report Type: 
  Country: None (occurrence: None)
  Receive Date: 20110831
  Receipt Date: 20110831
  Transmission Date: 20111222
  Serious: Yes (Life-Threatening, Hospitalization)
  Sender: FDA-Public Use
  Company Number: None

PATIENT
  Age: 63 Year
  Sex: Male
  Weight: 141.8 kg

DRUGS (2)
  1. WARFARIN SODIUM [Suspect]
     Dosage: 3 MG EVERY DAY PO
     Route: 048
     Dates: start: 20080326, end: 20110822
  2. INDOMETHACIN [Suspect]
     Dosage: 25 MG TID PO
     Route: 048
     Dates: start: 20110726, end: 20110822

REACTIONS (5)
  - HAEMOGLOBIN DECREASED [None]
  - INTERNATIONAL NORMALISED RATIO INCREASED [None]
  - GASTRIC HAEMORRHAGE [None]
  - HAEMATOCRIT DECREASED [None]
  - MELAENA [None]
